FAERS Safety Report 5418735-0 (Version None)
Quarter: 2007Q3

REPORT INFORMATION
  Report Type: 
  Country: None (occurrence: None)
  Receive Date: 20070817
  Receipt Date: 20070809
  Transmission Date: 20080115
  Serious: Yes (Other)
  Sender: FDA-Public Use
  Company Number: CA-PFIZER INC-2007055773

PATIENT
  Sex: Male
  Weight: 90.7 kg

DRUGS (5)
  1. LIPITOR [Suspect]
     Indication: BLOOD CHOLESTEROL INCREASED
     Route: 048
  2. GABAPENTIN [Concomitant]
  3. CARBAMAZEPINE [Concomitant]
  4. DIAZEPAM [Concomitant]
  5. ALTACE [Concomitant]

REACTIONS (3)
  - AMNESIA [None]
  - DIABETES MELLITUS [None]
  - MEMORY IMPAIRMENT [None]
